FAERS Safety Report 4749647-3 (Version None)
Quarter: 2005Q3

REPORT INFORMATION
  Report Type: 
  Country: None (occurrence: None)
  Receive Date: 20050822
  Receipt Date: 20050815
  Transmission Date: 20060218
  Serious: Yes (Hospitalization, Other)
  Sender: FDA-Public Use
  Company Number: PHBS2005US11900

PATIENT
  Age: 59 Year
  Sex: Male

DRUGS (8)
  1. CLOZAPINE [Suspect]
     Indication: SCHIZOPHRENIA, PARANOID TYPE
     Route: 065
  2. CLOZAPINE [Suspect]
     Dosage: 137.5 MG/D
     Route: 065
  3. BENZTROPEINE [Concomitant]
     Route: 065
  4. DIVALPROEX SODIUM [Concomitant]
     Route: 065
  5. LORAZEPAM [Concomitant]
     Route: 065
  6. TRAZODONE [Concomitant]
     Route: 065
  7. LEVOTHYROXINE [Concomitant]
     Route: 065
  8. HALOPERIDOL [Concomitant]
     Route: 065

REACTIONS (2)
  - LEUKOCYTOCLASTIC VASCULITIS [None]
  - PURPURA [None]
